FAERS Safety Report 7316078-1 (Version None)
Quarter: 2011Q1

REPORT INFORMATION
  Report Type: 
  Country: None (occurrence: None)
  Receive Date: 20110225
  Receipt Date: 20110217
  Transmission Date: 20110831
  Serious: Yes (Hospitalization)
  Sender: FDA-Public Use
  Company Number: FR-JNJFOC-20101107606

PATIENT
  Sex: Female

DRUGS (6)
  1. FEROGRAD [Concomitant]
     Indication: ANAEMIA
     Route: 048
  2. STELARA [Suspect]
     Indication: PSORIASIS
     Route: 058
  3. STELARA [Suspect]
     Route: 058
  4. NEXIUM [Concomitant]
     Indication: VARICES OESOPHAGEAL
     Route: 048
  5. SPIRONOLACTONE [Concomitant]
     Indication: HEPATIC CIRRHOSIS
     Route: 048
  6. SERESTA [Concomitant]
     Indication: ANXIETY
     Route: 048

REACTIONS (6)
  - THROMBOCYTOPENIA [None]
  - NAUSEA [None]
  - ANAEMIA [None]
  - VOMITING [None]
  - MACROCYTOSIS [None]
  - LYMPHOPENIA [None]
